FAERS Safety Report 15295219 (Version 1)
Quarter: 2018Q3

REPORT INFORMATION
  Report Type: Spontaneous
  Country: US (occurrence: US)
  Receive Date: 20180807
  Receipt Date: 20180807
  Transmission Date: 20181010
  Serious: No
  Sender: FDA-Public Use
  Company Number: None

PATIENT
  Age: 67 Year
  Sex: Male
  Weight: 74.25 kg

DRUGS (24)
  1. ADVAIR DISKUS [Concomitant]
     Active Substance: FLUTICASONE PROPIONATE\SALMETEROL XINAFOATE
  2. BACLOFEN. [Concomitant]
     Active Substance: BACLOFEN
  3. BUPROPRION [Concomitant]
     Active Substance: BUPROPION
  4. HYDRALAZINE [Concomitant]
     Active Substance: HYDRALAZINE HYDROCHLORIDE
  5. NAPROXEN. [Concomitant]
     Active Substance: NAPROXEN
  6. SIMVASTATIN. [Concomitant]
     Active Substance: SIMVASTATIN
  7. LOSARTAN. [Concomitant]
     Active Substance: LOSARTAN
  8. NALTROXENE [Concomitant]
  9. PLEXUS MEGAX [Concomitant]
  10. VITAL BIOME [Concomitant]
  11. QUETIAPINE. [Concomitant]
     Active Substance: QUETIAPINE
  12. DULXETINE [Concomitant]
  13. TRAZODONE [Concomitant]
     Active Substance: TRAZODONE HYDROCHLORIDE
  14. DALIRESP [Concomitant]
     Active Substance: ROFLUMILAST
  15. FLUTICASONE. [Concomitant]
     Active Substance: FLUTICASONE
  16. OMEPRAZOLE. [Concomitant]
     Active Substance: OMEPRAZOLE
  17. PROAIR HFA [Concomitant]
     Active Substance: ALBUTEROL SULFATE
  18. ASA [Concomitant]
     Active Substance: ASPIRIN
  19. CARVEDILOL. [Concomitant]
     Active Substance: CARVEDILOL
  20. ISOSORBIDE MONONITRATE. [Concomitant]
     Active Substance: ISOSORBIDE MONONITRATE
  21. MIRTAZEPINE [Concomitant]
     Active Substance: MIRTAZAPINE
  22. XFACTOR VITAMINS [Concomitant]
  23. GABAPENTIN. [Suspect]
     Active Substance: GABAPENTIN
     Indication: FIBROMYALGIA
     Dosage: ?          QUANTITY:1 TABLET(S);?
     Route: 048
     Dates: start: 20170101, end: 20180806
  24. IPRATROPIUM/ALBUTEROL INHALER [Concomitant]

REACTIONS (5)
  - Dyskinesia [None]
  - Grip strength decreased [None]
  - Gait disturbance [None]
  - Feeding disorder [None]
  - Balance disorder [None]

NARRATIVE: CASE EVENT DATE: 20180806
